FAERS Safety Report 17639850 (Version 2)
Quarter: 2020Q2

REPORT INFORMATION
  Report Type: Spontaneous
  Country: US (occurrence: US)
  Receive Date: 20200407
  Receipt Date: 20200430
  Transmission Date: 20200713
  Serious: Yes (Other)
  Sender: FDA-Public Use
  Company Number: US-AMGEN-USASP2020055813

PATIENT
  Age: 81 Year
  Sex: Female
  Weight: 71.66 kg

DRUGS (5)
  1. REPATHA [Suspect]
     Active Substance: EVOLOCUMAB
     Indication: BLOOD CHOLESTEROL ABNORMAL
     Dosage: 140 MILLIGRAM
     Route: 065
     Dates: start: 20200308, end: 20200308
  2. PLAVIX [Concomitant]
     Active Substance: CLOPIDOGREL BISULFATE
     Indication: STENT PLACEMENT
     Dosage: 75 MILLIGRAM, QD
  3. AMITRIPTYLINE [Concomitant]
     Active Substance: AMITRIPTYLINE
     Dosage: 10 MILLIGRAM, QD
  4. COQ 10 [Concomitant]
     Active Substance: UBIDECARENONE
     Indication: MYALGIA
     Dosage: 100 MILLIGRAM, QD
     Dates: start: 20200225
  5. SINEMET [Concomitant]
     Active Substance: CARBIDOPA\LEVODOPA
     Indication: PARKINSON^S DISEASE
     Dosage: 25/100, BID

REACTIONS (9)
  - Chills [Unknown]
  - Confusional state [Unknown]
  - Balance disorder [Unknown]
  - Fatigue [Unknown]
  - Myalgia [Unknown]
  - Mental impairment [Unknown]
  - Rhinorrhoea [Unknown]
  - Pain [Unknown]
  - Pain in extremity [Unknown]

NARRATIVE: CASE EVENT DATE: 20200308
